FAERS Safety Report 17084565 (Version 1)
Quarter: 2019Q4

REPORT INFORMATION
  Report Type: Spontaneous
  Country: US (occurrence: US)
  Receive Date: 20191127
  Receipt Date: 20191127
  Transmission Date: 20200122
  Serious: No
  Sender: FDA-Public Use
  Company Number: US-TEVA-2019-US-1143797

PATIENT
  Age: 75 Year
  Sex: Female
  Weight: 98.87 kg

DRUGS (16)
  1. PRAMIPEXOLE. [Concomitant]
     Active Substance: PRAMIPEXOLE
  2. LISINOPRIL. [Concomitant]
     Active Substance: LISINOPRIL
  3. ECHINACEA [Concomitant]
     Active Substance: ECHINACEA, UNSPECIFIED
  4. VITAMIN B COMPLEX [Concomitant]
     Active Substance: CYANOCOBALAMIN\DEXPANTHENOL\NIACINAMIDE\PYRIDOXINE HYDROCHLORIDE\RIBOFLAVIN 5^-PHOSPHATE SODIUM\THIAMINE HYDROCHLORIDE\VITAMIN B COMPLEX
  5. METFORMIN [Concomitant]
     Active Substance: METFORMIN HYDROCHLORIDE
  6. MULTIVITAMINS, PLAIN (MULTIVITAMINS, PLAIN) [Concomitant]
  7. FEXOFENADINE 180 MG 571 (FEXOFENADINE) TABLET [Suspect]
     Active Substance: FEXOFENADINE HYDROCHLORIDE
     Indication: PERENNIAL ALLERGY
     Dosage: 180 MILLIGRAM DAILY;
     Route: 048
     Dates: start: 20191118, end: 20191118
  8. MYRBETRIQ [Concomitant]
     Active Substance: MIRABEGRON
  9. MAGNESIUM [Concomitant]
     Active Substance: MAGNESIUM
  10. IBUPROFEN. [Concomitant]
     Active Substance: IBUPROFEN
  11. POTASSIUM [Concomitant]
     Active Substance: POTASSIUM
  12. GINGER. [Concomitant]
     Active Substance: GINGER
  13. FLUOXETINE [Concomitant]
     Active Substance: FLUOXETINE HYDROCHLORIDE
  14. PREGABALIN. [Concomitant]
     Active Substance: PREGABALIN
  15. PRIMIDONE. [Concomitant]
     Active Substance: PRIMIDONE
  16. ASPIRIN. [Concomitant]
     Active Substance: ASPIRIN

REACTIONS (2)
  - Therapeutic product effect incomplete [Unknown]
  - Product administered to patient of inappropriate age [Unknown]

NARRATIVE: CASE EVENT DATE: 20191118
